FAERS Safety Report 8608962-3 (Version None)
Quarter: 2012Q3

REPORT INFORMATION
  Report Type: 
  Country: None (occurrence: None)
  Receive Date: 20120821
  Receipt Date: 20120813
  Transmission Date: 20120928
  Serious: Yes (Hospitalization)
  Sender: FDA-Public Use
  Company Number: US-GLAXOSMITHKLINE-A0861341A

PATIENT
  Age: 56 Year
  Sex: Male
  Weight: 120.8 kg

DRUGS (1)
  1. AVANDIA [Suspect]
     Indication: TYPE 2 DIABETES MELLITUS
     Route: 048
     Dates: start: 20020101, end: 20090101

REACTIONS (3)
  - CARDIAC DISORDER [None]
  - SUPRAVENTRICULAR TACHYCARDIA [None]
  - MYOCARDIAL INFARCTION [None]
